FAERS Safety Report 5483277-3 (Version None)
Quarter: 2007Q4

REPORT INFORMATION
  Report Type: 
  Country: None (occurrence: None)
  Receive Date: 20071012
  Receipt Date: 20071002
  Transmission Date: 20080405
  Serious: Yes (Other)
  Sender: FDA-Public Use
  Company Number: PHEH2007US13175

PATIENT
  Age: 65 Year
  Sex: Male

DRUGS (13)
  1. TEKTURNA [Suspect]
     Indication: HYPERTENSION
     Dosage: 150 MG, QD
     Route: 048
     Dates: start: 20070901
  2. IMURAN [Concomitant]
  3. PREDNISONE [Concomitant]
  4. HUMALOG [Concomitant]
  5. TUMS [Concomitant]
  6. CLONIDINE [Concomitant]
  7. LISINOPRIL [Concomitant]
  8. COREG [Concomitant]
  9. DOXAZOSIN MESYLATE [Concomitant]
  10. FUROSEMIDE [Concomitant]
  11. PRAVASTATIN [Concomitant]
  12. FOSAMAX [Concomitant]
  13. CYCLOSPORINE [Concomitant]

REACTIONS (1)
  - HYPERGLYCAEMIA [None]
